FAERS Safety Report 9587868 (Version 2)
Quarter: 2014Q1

REPORT INFORMATION
  Report Type: Spontaneous
  Country: US (occurrence: US)
  Receive Date: 20131003
  Receipt Date: 20140311
  Transmission Date: 20141002
  Serious: Yes (Hospitalization)
  Sender: FDA-Public Use
  Company Number: US-B.I. PHARMACEUTICALS,INC./RIDGEFIELD-2013-BI-30291BP

PATIENT
  Sex: Female
  Weight: 52.16 kg

DRUGS (11)
  1. PRADAXA [Suspect]
     Indication: ATRIAL FIBRILLATION
     Route: 065
     Dates: start: 20110308, end: 20111003
  2. PRADAXA [Suspect]
     Indication: CAROTID ARTERY STENOSIS
  3. MULTAQ [Concomitant]
     Route: 065
     Dates: start: 2008
  4. MULTIVITAMIN [Concomitant]
     Route: 065
     Dates: start: 2008
  5. TOPROL [Concomitant]
     Route: 065
  6. CARDIZEM [Concomitant]
     Dosage: 120 MG
     Route: 048
  7. PRAVACHOL [Concomitant]
     Route: 065
  8. GLUCOSAMINE CHONDROITIN [Concomitant]
     Route: 048
     Dates: start: 2008
  9. ACTONEL [Concomitant]
     Route: 065
  10. CENTRUM [Concomitant]
     Route: 065
  11. METAMUCIL [Concomitant]
     Route: 065

REACTIONS (4)
  - Gastrointestinal haemorrhage [Recovered/Resolved]
  - Haemorrhagic anaemia [Unknown]
  - Renal failure acute [Unknown]
  - Coagulopathy [Unknown]
